FAERS Safety Report 4309692-9 (Version None)
Quarter: 2004Q1

REPORT INFORMATION
  Report Type: 
  Country: None (occurrence: None)
  Receive Date: 20040302
  Receipt Date: 20040220
  Transmission Date: 20041129
  Serious: No
  Sender: FDA-Public Use
  Company Number: 2003UW17312

PATIENT
  Age: 46 Year
  Sex: Female
  Weight: 85.2762 kg

DRUGS (1)
  1. TAMOXIFEN [Suspect]
     Indication: HYPERPLASIA
     Dosage: 20 MG ONCE PO
     Route: 048
     Dates: start: 20031103, end: 20031103

REACTIONS (1)
  - SUPRAVENTRICULAR TACHYCARDIA [None]
